FAERS Safety Report 12983722 (Version 1)
Quarter: 2016Q4

REPORT INFORMATION
  Report Type: Spontaneous
  Country: US (occurrence: US)
  Receive Date: 20161129
  Receipt Date: 20161129
  Transmission Date: 20170207
  Serious: Yes (Other)
  Sender: FDA-Public Use
  Company Number: US-ECLAT PHARMACEUTICALS-2016ECL00069

PATIENT

DRUGS (1)
  1. BLOXIVERZ [Suspect]
     Active Substance: NEOSTIGMINE METHYLSULFATE

REACTIONS (1)
  - Endotracheal intubation complication [Unknown]
